FAERS Safety Report 8304696-3 (Version None)
Quarter: 2012Q2

REPORT INFORMATION
  Report Type: 
  Country: None (occurrence: None)
  Receive Date: 20120423
  Receipt Date: 20120416
  Transmission Date: 20120825
  Serious: Yes (Life-Threatening)
  Sender: FDA-Public Use
  Company Number: DE-ROCHE-1045076

PATIENT
  Age: 49 Year
  Sex: Male
  Weight: 99 kg

DRUGS (3)
  1. COPEGUS [Suspect]
     Indication: HEPATITIS C
     Route: 048
     Dates: start: 20120130, end: 20120218
  2. PEGASYS [Suspect]
     Indication: HEPATITIS C
     Route: 058
     Dates: start: 20120130, end: 20120218
  3. INCIVO [Suspect]
     Indication: HEPATITIS C
     Route: 048
     Dates: start: 20120130, end: 20120218

REACTIONS (2)
  - ACUTE MYOCARDIAL INFARCTION [None]
  - ACUTE CORONARY SYNDROME [None]
